FAERS Safety Report 20561895 (Version 1)
Quarter: 2022Q1

REPORT INFORMATION
  Report Type: Spontaneous
  Country: US (occurrence: None)
  Receive Date: 20220306
  Receipt Date: 20220306
  Transmission Date: 20220423
  Serious: Yes (Disabling, Other)
  Sender: FDA-Public Use
  Company Number: None

PATIENT
  Age: 62 Year
  Sex: Male
  Weight: 112.5 kg

DRUGS (7)
  1. PROPECIA [Suspect]
     Active Substance: FINASTERIDE
     Indication: Alopecia
     Dosage: OTHER QUANTITY : 1 TABLET(S);?
     Dates: start: 20100101, end: 20130101
  2. PROPECIA [Suspect]
     Active Substance: FINASTERIDE
     Indication: Prophylaxis
  3. ASRORVASTATIN [Concomitant]
  4. LOZARTAN [Concomitant]
  5. ASPIRIN [Concomitant]
     Active Substance: ASPIRIN
  6. FISG OIL [Concomitant]
  7. SAW OF PALMETTO [Concomitant]

REACTIONS (2)
  - Type 2 diabetes mellitus [None]
  - Loss of libido [None]

NARRATIVE: CASE EVENT DATE: 20170102
